FAERS Safety Report 7532160-8 (Version None)
Quarter: 2011Q2

REPORT INFORMATION
  Report Type: 
  Country: None (occurrence: None)
  Receive Date: 20110608
  Receipt Date: 20110602
  Transmission Date: 20111010
  Serious: No
  Sender: FDA-Public Use
  Company Number: US-PFIZER INC-2011120633

PATIENT
  Sex: Female

DRUGS (6)
  1. BENICAR [Concomitant]
     Indication: HYPERTENSION
     Dosage: UNK
  2. MONTELUKAST [Concomitant]
     Indication: HYPERSENSITIVITY
  3. MONTELUKAST [Concomitant]
     Indication: ASTHMA
     Dosage: UNK
  4. NASONEX [Concomitant]
     Dosage: UNK
  5. PREMARIN [Suspect]
     Indication: HORMONE REPLACEMENT THERAPY
     Dosage: UNK
     Route: 048
  6. ESTRADIOL [Concomitant]
     Indication: HORMONE REPLACEMENT THERAPY
     Dosage: UNK

REACTIONS (2)
  - DRUG INEFFECTIVE [None]
  - DEPRESSION [None]
